FAERS Safety Report 4717692-X (Version None)
Quarter: 2005Q3

REPORT INFORMATION
  Report Type: 
  Country: None (occurrence: None)
  Receive Date: 20050715
  Receipt Date: 20050708
  Transmission Date: 20060218
  Serious: Yes (Hospitalization)
  Sender: FDA-Public Use
  Company Number: KII-2005-0017506

PATIENT
  Age: 48 Year
  Sex: Male

DRUGS (11)
  1. HYDROMORPHONE HCL [Suspect]
     Dosage: SEE TEXT, ORAL
     Route: 048
  2. ZIPRASIDONE (ZIPRASIDONE) [Suspect]
     Dosage: ORAL
     Route: 048
  3. PROPRANOLOL [Suspect]
     Dosage: ORAL
     Route: 048
  4. ACETAMINOPHEN AND HYDROCODONE BITARTRATE [Suspect]
     Dosage: ORAL
     Route: 048
  5. ANTIDEPRESSANTS ( ) [Suspect]
     Dosage: ORAL
     Route: 048
  6. ASPIRIN [Suspect]
     Dosage: ORAL
     Route: 048
  7. ANTIEPILEPTICS ( ) [Suspect]
     Dosage: ORAL
     Route: 048
  8. ANTIINFLAMMATORY/ANTIRHEUMATIC PRODUCTS ( ) [Suspect]
     Dosage: ORAL
     Route: 048
  9. NSAIDS ( ) [Suspect]
     Dosage: ORAL
     Route: 048
  10. ACETAMINOPHEN AND OXYCODONE HCL [Suspect]
     Dosage: ORAL
     Route: 048
  11. ANGIOTENSIN RECEPTOR BLOCKER ( ) [Suspect]
     Dosage: ORAL
     Route: 048

REACTIONS (7)
  - BUNDLE BRANCH BLOCK RIGHT [None]
  - DISORIENTATION [None]
  - ELECTROCARDIOGRAM QRS COMPLEX PROLONGED [None]
  - ELECTROCARDIOGRAM T WAVE INVERSION [None]
  - OVERDOSE [None]
  - SOMNOLENCE [None]
  - TONIC CLONIC MOVEMENTS [None]
